FAERS Safety Report 7040718-8 (Version None)
Quarter: 2010Q4

REPORT INFORMATION
  Report Type: 
  Country: None (occurrence: None)
  Receive Date: 20101013
  Receipt Date: 20101004
  Transmission Date: 20110411
  Serious: Yes (Hospitalization)
  Sender: FDA-Public Use
  Company Number: 2008BI011229

PATIENT
  Age: 56 Year
  Sex: Female

DRUGS (3)
  1. AVONEX [Suspect]
     Indication: MULTIPLE SCLEROSIS
     Route: 030
     Dates: start: 20060108, end: 20080401
  2. AVONEX [Suspect]
     Route: 030
     Dates: start: 20080522, end: 20100815
  3. AVONEX [Suspect]
     Route: 030
     Dates: start: 20100919

REACTIONS (4)
  - BREAST CANCER RECURRENT [None]
  - BREAST RECONSTRUCTION [None]
  - GENERAL SYMPTOM [None]
  - POSTOPERATIVE WOUND INFECTION [None]
